FAERS Safety Report 8533117-0 (Version None)
Quarter: 2012Q3

REPORT INFORMATION
  Report Type: 
  Country: None (occurrence: None)
  Receive Date: 20120724
  Receipt Date: 20120718
  Transmission Date: 20120928
  Serious: Yes (Death, Other)
  Sender: FDA-Public Use
  Company Number: JP-JNJFOC-20120700462

PATIENT
  Age: 9 Decade

DRUGS (1)
  1. FENTANYL-100 [Suspect]
     Indication: CANCER PAIN
     Route: 062

REACTIONS (2)
  - DEPRESSED LEVEL OF CONSCIOUSNESS [None]
  - NEOPLASM MALIGNANT [None]
